FAERS Safety Report 4337544-7 (Version None)
Quarter: 2004Q1

REPORT INFORMATION
  Report Type: 
  Country: None (occurrence: None)
  Receive Date: 20040329
  Receipt Date: 20031223
  Transmission Date: 20041129
  Serious: No
  Sender: FDA-Public Use
  Company Number: USA031255348

PATIENT
  Age: 25 Year
  Sex: Male

DRUGS (1)
  1. STRATTERA [Suspect]
     Dosage: 72 MG/DAY
     Dates: start: 20031101

REACTIONS (1)
  - DRUG SCREEN FALSE POSITIVE [None]
